FAERS Safety Report 11128685 (Version 1)
Quarter: 2015Q2

REPORT INFORMATION
  Report Type: Spontaneous
  Country: US (occurrence: US)
  Receive Date: 20150521
  Receipt Date: 20150521
  Transmission Date: 20150821
  Serious: No
  Sender: FDA-Public Use
  Company Number: US-TEVA-563485USA

PATIENT
  Age: 52 Year
  Sex: Female

DRUGS (1)
  1. COPAXONE [Suspect]
     Active Substance: GLATIRAMER ACETATE
     Indication: MULTIPLE SCLEROSIS
     Dates: start: 20150303, end: 20150430

REACTIONS (5)
  - Hypertension [Unknown]
  - Pain [Unknown]
  - Epistaxis [Unknown]
  - Mood altered [Unknown]
  - Rash [Unknown]

NARRATIVE: CASE EVENT DATE: 20150325
